FAERS Safety Report 23116443 (Version 1)
Quarter: 2023Q4

REPORT INFORMATION
  Report Type: Spontaneous
  Country: US (occurrence: None)
  Receive Date: 20231027
  Receipt Date: 20231027
  Transmission Date: 20240109
  Serious: No
  Sender: FDA-Public Use
  Company Number: None

PATIENT
  Age: 68 Year
  Sex: Female

DRUGS (3)
  1. REPATHA [Suspect]
     Active Substance: EVOLOCUMAB
     Indication: Hyperlipidaemia
     Dosage: OTHER FREQUENCY : EVERY 2 WEEKS;?
     Route: 058
     Dates: start: 20221111
  2. VASCEPA [Concomitant]
     Active Substance: ICOSAPENT ETHYL
  3. ZETIA [Concomitant]
     Active Substance: EZETIMIBE

REACTIONS (6)
  - Pain in extremity [None]
  - Musculoskeletal stiffness [None]
  - Muscle spasms [None]
  - Asthenia [None]
  - Pain [None]
  - Gait disturbance [None]

NARRATIVE: CASE EVENT DATE: 20231025
